FAERS Safety Report 9288789 (Version 3)
Quarter: 2013Q3

REPORT INFORMATION
  Report Type: Report from Study
  Country: US (occurrence: US)
  Receive Date: 20130514
  Receipt Date: 20130816
  Transmission Date: 20140515
  Serious: Yes (Other)
  Sender: FDA-Public Use
  Company Number: US-ABBOTT-13P-163-1086456-00

PATIENT
  Age: 56 Year
  Sex: Female
  Weight: 93.07 kg

DRUGS (3)
  1. HUMIRA [Suspect]
     Indication: CROHN^S DISEASE
     Route: 058
     Dates: start: 20130319
  2. HUMIRA [Suspect]
     Indication: CROHN^S DISEASE
  3. ANTI-HYPERTENSION MEDICATION [Concomitant]
     Indication: HYPERTENSION

REACTIONS (7)
  - Optic ischaemic neuropathy [Not Recovered/Not Resolved]
  - Retinal vein occlusion [Recovering/Resolving]
  - Blindness unilateral [Not Recovered/Not Resolved]
  - Impaired work ability [Unknown]
  - Altered visual depth perception [Not Recovered/Not Resolved]
  - Hypertension [Not Recovered/Not Resolved]
  - Depression [Not Recovered/Not Resolved]
